FAERS Safety Report 4419893-7 (Version None)
Quarter: 2004Q3

REPORT INFORMATION
  Report Type: 
  Country: None (occurrence: None)
  Receive Date: 20040805
  Receipt Date: 20040805
  Transmission Date: 20050211
  Serious: Yes (Hospitalization)
  Sender: FDA-Public Use
  Company Number: None

PATIENT
  Age: 61 Year
  Sex: Male
  Weight: 89.3586 kg

DRUGS (21)
  1. ESTRAMUSTINE 140MG BID DAYS 1-5 N/A 140MG BID DAY 1-5X 6WK ORAL MET. P [Suspect]
     Dates: start: 20040503, end: 20040726
  2. TAXOTERE [Suspect]
     Dates: start: 20040504, end: 20040720
  3. VICOPROFEN [Concomitant]
  4. IBUPROFEN [Concomitant]
  5. NIASPAN [Concomitant]
  6. LIPITOR [Concomitant]
  7. DOCUSAT [Concomitant]
  8. SENNOSIDES [Concomitant]
  9. OXYCONTIN [Concomitant]
  10. AVANDIA [Concomitant]
  11. ADVAIR [Concomitant]
  12. TOPROL-XL [Concomitant]
  13. LUPRON [Concomitant]
  14. EFFEXOR [Concomitant]
  15. ASPIRIN [Concomitant]
  16. COMPAZINE [Concomitant]
  17. DECADRON [Concomitant]
  18. ZOMETA [Concomitant]
  19. ARANESP [Concomitant]
  20. TAVIST D [Concomitant]
  21. CELEBREX [Concomitant]

REACTIONS (4)
  - HAEMOGLOBIN DECREASED [None]
  - LOBAR PNEUMONIA [None]
  - PLEURITIC PAIN [None]
  - SPUTUM DISCOLOURED [None]
